FAERS Safety Report 20760937 (Version 1)
Quarter: 2022Q2

REPORT INFORMATION
  Report Type: Spontaneous
  Country: US (occurrence: US)
  Receive Date: 20220428
  Receipt Date: 20220428
  Transmission Date: 20220720
  Serious: No
  Sender: FDA-Public Use
  Company Number: US-CELGENE-USA-20220105826

PATIENT
  Age: 58 Year
  Sex: Male
  Weight: 89.36 kg

DRUGS (1)
  1. REVLIMID [Suspect]
     Active Substance: LENALIDOMIDE
     Indication: Plasmacytoma
     Dosage: 10 MILLIGRAM
     Route: 048

REACTIONS (4)
  - Stomatitis [Unknown]
  - Night sweats [Unknown]
  - Malaise [Unknown]
  - Intentional product use issue [Unknown]
